FAERS Safety Report 4890480-X (Version None)
Quarter: 2005Q4

REPORT INFORMATION
  Report Type: 
  Country: None (occurrence: None)
  Receive Date: 20051214
  Receipt Date: 20050809
  Transmission Date: 20060501
  Serious: No
  Sender: FDA-Public Use
  Company Number: S05-USA-03871-01

PATIENT
  Age: 46 Year
  Sex: Female
  Weight: 48.9885 kg

DRUGS (5)
  1. CAMPRAL [Suspect]
     Indication: ALCOHOLISM
     Dosage: 666 MG TID PO
     Route: 048
     Dates: start: 20050725, end: 20050808
  2. CAMPRAL [Suspect]
     Indication: ALCOHOLISM
     Dosage: 333 MG TID PO
     Route: 048
     Dates: start: 20050809
  3. WELLBUTRIN [Concomitant]
  4. LEXAPRO [Concomitant]
  5. THYROID TAB [Concomitant]

REACTIONS (5)
  - DIARRHOEA [None]
  - DIZZINESS [None]
  - FATIGUE [None]
  - FEELING HOT [None]
  - FLATULENCE [None]
